FAERS Safety Report 19566295 (Version 1)
Quarter: 2021Q3

REPORT INFORMATION
  Report Type: Report from Study
  Country: CN (occurrence: CN)
  Receive Date: 20210715
  Receipt Date: 20210715
  Transmission Date: 20211014
  Serious: Yes (Hospitalization)
  Sender: FDA-Public Use
  Company Number: CN-ROCHE-2860420

PATIENT
  Sex: Male

DRUGS (11)
  1. MPS [Concomitant]
     Indication: PROPHYLAXIS
  2. ETOPOSIDE. [Suspect]
     Active Substance: ETOPOSIDE
     Indication: SMALL CELL LUNG CANCER EXTENSIVE STAGE
     Dosage: DATE OF MOST RECENT DOSE PRIOR TO AE: 05/JUN/2021 (150 MG)
     Route: 042
  3. FOSAPREPITANT DIMEGLUMINE. [Concomitant]
     Active Substance: FOSAPREPITANT DIMEGLUMINE
  4. BLINDED BEVACIZUMAB [Suspect]
     Active Substance: BEVACIZUMAB
     Indication: SMALL CELL LUNG CANCER EXTENSIVE STAGE
     Dosage: DATE OF MOST RECENT DOSE PRIOR TO AE: 03/JUN/2021
     Route: 042
  5. LEVOTHYROXINE SODIUM. [Concomitant]
     Active Substance: LEVOTHYROXINE SODIUM
     Indication: HYPOTHYROIDISM
  6. ATEZOLIZUMAB. [Suspect]
     Active Substance: ATEZOLIZUMAB
     Indication: SMALL CELL LUNG CANCER EXTENSIVE STAGE
     Dosage: DATE OF MOST RECENT DOSE PRIOR TO AE: 03/JUN/2021
     Route: 041
  7. CARBOPLATIN. [Suspect]
     Active Substance: CARBOPLATIN
     Indication: SMALL CELL LUNG CANCER EXTENSIVE STAGE
     Dosage: DATE OF MOST RECENT DOSE PRIOR TO AE: 03/JUN/2021 (438 MG)
     Route: 042
  8. ILAPRAZOLE [Concomitant]
     Active Substance: ILAPRAZOLE
     Indication: PROPHYLAXIS
  9. OSELTAMIVIR [Concomitant]
     Active Substance: OSELTAMIVIR
     Indication: UPPER RESPIRATORY TRACT INFECTION
  10. LEVOFLOXACIN. [Concomitant]
     Active Substance: LEVOFLOXACIN
     Indication: BACTERIAL INFECTION
  11. MAGNESIUM ISOGLYCYRRHIZINATE [Concomitant]
     Active Substance: MAGNESIUM ISOGLYCYRRHIZINATE

REACTIONS (1)
  - Upper respiratory tract infection [Recovered/Resolved]

NARRATIVE: CASE EVENT DATE: 20210622
